FAERS Safety Report 21934530 (Version 1)
Quarter: 2023Q1

REPORT INFORMATION
  Report Type: Spontaneous
  Country: US (occurrence: US)
  Receive Date: 20230201
  Receipt Date: 20230201
  Transmission Date: 20230418
  Serious: No
  Sender: FDA-Public Use
  Company Number: US-009507513-2301USA007223

PATIENT
  Age: 68 Year
  Sex: Male

DRUGS (3)
  1. BELSOMRA [Suspect]
     Active Substance: SUVOREXANT
     Indication: Insomnia
     Dosage: 1 TABLET (10 MILLIGRAM), NIGHTLY (QPM), FIRST NIGHT
     Route: 048
     Dates: start: 20230116
  2. BELSOMRA [Suspect]
     Active Substance: SUVOREXANT
     Dosage: 20 MG, SECOND NIGHT
     Route: 048
     Dates: start: 20230117
  3. QUETIAPINE [Concomitant]
     Active Substance: QUETIAPINE
     Dosage: 2 TABLETS (300 MILLIGRAM), NIGHTLY (QPM)
     Route: 048
     Dates: start: 20230116

REACTIONS (1)
  - Drug ineffective [Unknown]

NARRATIVE: CASE EVENT DATE: 20230117
